FAERS Safety Report 5766850-4 (Version None)
Quarter: 2008Q2

REPORT INFORMATION
  Report Type: 
  Country: None (occurrence: None)
  Receive Date: 20080609
  Receipt Date: 20080529
  Transmission Date: 20081010
  Serious: Yes (Hospitalization)
  Sender: FDA-Public Use
  Company Number: GXKR2008US04876

PATIENT
  Age: 74 Year
  Sex: Male

DRUGS (4)
  1. TERAZOSIN HCL [Suspect]
     Indication: HYPERTENSION
     Dosage: ORAL
     Route: 048
  2. RAMIPRIL [Concomitant]
  3. CARVEDILOL [Concomitant]
  4. DILTIAZEM HYDROCHLORIDE [Concomitant]

REACTIONS (5)
  - ACUTE GENERALISED EXANTHEMATOUS PUSTULOSIS [None]
  - ERYTHEMA [None]
  - PYREXIA [None]
  - RASH [None]
  - RENAL FAILURE ACUTE [None]
